FAERS Safety Report 24384630 (Version 1)
Quarter: 2024Q4

REPORT INFORMATION
  Report Type: Spontaneous
  Country: FR (occurrence: FR)
  Receive Date: 20241001
  Receipt Date: 20241001
  Transmission Date: 20250115
  Serious: Yes (Hospitalization)
  Sender: TEVA
  Company Number: None

PATIENT
  Age: 40 Year
  Sex: Male
  Weight: 62.8 kg

DRUGS (3)
  1. AZITHROMYCIN [Suspect]
     Active Substance: AZITHROMYCIN
     Indication: Cough
     Dosage: AZITHROMYCINE
     Route: 048
     Dates: start: 20240809, end: 20240812
  2. AZITHROMYCIN [Suspect]
     Active Substance: AZITHROMYCIN
     Indication: Cough
     Dosage: AZITHROMYCINE
     Route: 048
     Dates: start: 20240808, end: 20240808
  3. BETAMETHASONE [Suspect]
     Active Substance: BETAMETHASONE
     Indication: Cough
     Route: 048
     Dates: start: 20240808, end: 20240812

REACTIONS (1)
  - Pancreatitis acute [Recovered/Resolved]

NARRATIVE: CASE EVENT DATE: 20240813
